FAERS Safety Report 10162952 (Version 1)
Quarter: 2014Q2

REPORT INFORMATION
  Report Type: Spontaneous
  Country: US (occurrence: US)
  Receive Date: 20140509
  Receipt Date: 20140509
  Transmission Date: 20141212
  Serious: No
  Sender: FDA-Public Use
  Company Number: US-PFIZER INC-2014126402

PATIENT
  Age: 63 Year
  Sex: Male
  Weight: 98.41 kg

DRUGS (2)
  1. AMLODIPINE BESILATE [Suspect]
     Indication: HYPERTENSION
     Dosage: UNK
     Dates: start: 20140107, end: 20140114
  2. MELOXICAM [Concomitant]
     Indication: ARTHRITIS
     Dosage: 10 MG, DAILY

REACTIONS (2)
  - Oedema [Not Recovered/Not Resolved]
  - Arthralgia [Not Recovered/Not Resolved]
